FAERS Safety Report 5801131-1 (Version None)
Quarter: 2008Q3

REPORT INFORMATION
  Report Type: 
  Country: None (occurrence: None)
  Receive Date: 20080707
  Receipt Date: 20080623
  Transmission Date: 20090109
  Serious: Yes (Hospitalization)
  Sender: FDA-Public Use
  Company Number: PHHY2008DE12125

PATIENT
  Sex: Male

DRUGS (6)
  1. LIORESAL [Suspect]
     Indication: PARAPLEGIA
     Dosage: 25 MG, TID
     Route: 048
     Dates: start: 19780101
  2. LIORESAL [Suspect]
     Dosage: 10 MG, TID
     Route: 048
  3. LIORESAL [Suspect]
     Dosage: 25 MG, TID
     Route: 048
  4. MOVICOL [Concomitant]
  5. DULCOLAX [Concomitant]
  6. LAXOBERAL [Concomitant]

REACTIONS (3)
  - ABDOMINAL PAIN [None]
  - FLATULENCE [None]
  - LIPASE INCREASED [None]
